FAERS Safety Report 9759634 (Version 1)
Quarter: 2013Q4

REPORT INFORMATION
  Report Type: Spontaneous
  Country: US (occurrence: US)
  Receive Date: 20131216
  Receipt Date: 20131216
  Transmission Date: 20140711
  Serious: No
  Sender: FDA-Public Use
  Company Number: US-GILEAD-2010-0028291

PATIENT
  Age: 73 Year
  Sex: Female

DRUGS (15)
  1. LETAIRIS [Suspect]
     Indication: PULMONARY ARTERIAL HYPERTENSION
     Route: 048
     Dates: start: 20070918
  2. DIFLUCAN [Concomitant]
  3. ZOLPIDEM TARTRATE [Concomitant]
  4. CLONAZEPAM [Concomitant]
  5. SPIRIVA HANDIHALER [Concomitant]
  6. XOPENEX [Concomitant]
  7. ADVAIR DISKUS [Concomitant]
  8. IPRATROPIUM BROMIDE [Concomitant]
  9. EFFEXOR [Concomitant]
  10. PREMARIN [Concomitant]
  11. SERTRALINE HCL [Concomitant]
  12. OMEPRAZOLE [Concomitant]
  13. CHLORDIAZEPOXIDE HCL [Concomitant]
  14. BUTALBITAL [Concomitant]
  15. CEPHALEXIN [Concomitant]

REACTIONS (2)
  - Pruritus [Not Recovered/Not Resolved]
  - Acne [Unknown]
